FAERS Safety Report 5915561-0 (Version None)
Quarter: 2008Q4

REPORT INFORMATION
  Report Type: 
  Country: None (occurrence: None)
  Receive Date: 20081010
  Receipt Date: 20080812
  Transmission Date: 20090506
  Serious: No
  Sender: FDA-Public Use
  Company Number: A0742189A

PATIENT
  Sex: Female

DRUGS (1)
  1. TYKERB [Suspect]
     Dosage: 1000MG PER DAY
     Route: 048
     Dates: start: 20071201

REACTIONS (4)
  - DRUG INEFFECTIVE [None]
  - HEADACHE [None]
  - THERAPEUTIC RESPONSE UNEXPECTED [None]
  - VISUAL IMPAIRMENT [None]
